FAERS Safety Report 4976159-4 (Version None)
Quarter: 2006Q2

REPORT INFORMATION
  Report Type: 
  Country: None (occurrence: None)
  Receive Date: 20060410
  Receipt Date: 20051227
  Transmission Date: 20061013
  Serious: Yes (Death)
  Sender: FDA-Public Use
  Company Number: 2006-140423-NL

PATIENT
  Age: 82 Year
  Sex: Male

DRUGS (9)
  1. DANAPAROID SODIUM [Suspect]
     Indication: DISSEMINATED INTRAVASCULAR COAGULATION
     Route: 042
     Dates: start: 20050421, end: 20050421
  2. DANAPAROID SODIUM [Suspect]
     Indication: DISSEMINATED INTRAVASCULAR COAGULATION
     Route: 042
     Dates: start: 20050422, end: 20050422
  3. AMINOLEBAN [Concomitant]
  4. OMEPRAZOLE [Concomitant]
  5. GABEXATE  MESILATE [Concomitant]
  6. ULINASTATIN [Concomitant]
  7. IMMUNE GLOBULIN INTRAVENOUS (HUMAN) [Concomitant]
  8. SODIUM BICARBONATE [Concomitant]
  9. FUROSEMIDE [Concomitant]

REACTIONS (3)
  - HAEMOGLOBIN DECREASED [None]
  - NEOPLASM MALIGNANT [None]
  - UPPER GASTROINTESTINAL HAEMORRHAGE [None]
